FAERS Safety Report 10534810 (Version 2)
Quarter: 2014Q4

REPORT INFORMATION
  Report Type: Spontaneous
  Country: US (occurrence: US)
  Receive Date: 20141022
  Receipt Date: 20141024
  Transmission Date: 20150529
  Serious: No
  Sender: FDA-Public Use
  Company Number: US-ASTRAZENECA-2013SE91234

PATIENT
  Age: 62 Year
  Sex: Female

DRUGS (3)
  1. CRESTOR [Suspect]
     Active Substance: ROSUVASTATIN CALCIUM
     Indication: DYSLIPIDAEMIA
     Route: 048
     Dates: start: 20130619
  2. CRESTOR [Suspect]
     Active Substance: ROSUVASTATIN CALCIUM
     Indication: HYPERLIPIDAEMIA
     Route: 048
     Dates: start: 20130619
  3. SYNTHROID [Concomitant]
     Active Substance: LEVOTHYROXINE SODIUM

REACTIONS (8)
  - Lipids abnormal [Unknown]
  - Low density lipoprotein increased [Unknown]
  - Drug dose omission [Unknown]
  - Blood cholesterol abnormal [Not Recovered/Not Resolved]
  - Blood triglycerides increased [Unknown]
  - High density lipoprotein increased [Unknown]
  - Blood cholesterol increased [Unknown]
  - Flank pain [Unknown]
